FAERS Safety Report 24588875 (Version 1)
Quarter: 2024Q4

REPORT INFORMATION
  Report Type: Spontaneous
  Country: CN (occurrence: CN)
  Receive Date: 20241107
  Receipt Date: 20241107
  Transmission Date: 20250115
  Serious: Yes (Hospitalization, Other)
  Sender: PFIZER
  Company Number: CN-PFIZER INC-PV202400142529

PATIENT
  Age: 77 Year
  Sex: Male
  Weight: 60 kg

DRUGS (14)
  1. CYTARABINE [Suspect]
     Active Substance: CYTARABINE
     Indication: Acute myeloid leukaemia
     Dosage: 17 MG, 2X/DAY (D1-D7)
     Dates: start: 20240620, end: 20240626
  2. CYTARABINE [Suspect]
     Active Substance: CYTARABINE
     Dosage: 40 MG, 1X/DAY (D1-D10)
     Route: 041
     Dates: start: 20240820, end: 20240829
  3. CYTARABINE [Suspect]
     Active Substance: CYTARABINE
     Dosage: 40 MG (D1-D10)
     Dates: start: 20241016, end: 20241025
  4. AZACITIDINE [Suspect]
     Active Substance: AZACITIDINE
     Dosage: 126 MG (D1-D7)
     Dates: start: 20240620, end: 20240626
  5. AZACITIDINE [Suspect]
     Active Substance: AZACITIDINE
     Dosage: 125 MG (D1-7)
     Dates: start: 20240717, end: 20240723
  6. AZACITIDINE [Suspect]
     Active Substance: AZACITIDINE
     Dosage: 126 MG (D1-D7)
     Dates: start: 20240820, end: 20240826
  7. AZACITIDINE [Suspect]
     Active Substance: AZACITIDINE
     Dosage: 126 MG (D1-D7)
     Dates: start: 20241016, end: 20241022
  8. OMACETAXINE MEPESUCCINATE [Suspect]
     Active Substance: OMACETAXINE MEPESUCCINATE
     Dosage: 1.7 MG (D1-D7)
     Dates: start: 20240620, end: 20240626
  9. OMACETAXINE MEPESUCCINATE [Suspect]
     Active Substance: OMACETAXINE MEPESUCCINATE
     Dosage: 2 MG (D1-10)
     Dates: start: 20240820, end: 20240829
  10. OMACETAXINE MEPESUCCINATE [Suspect]
     Active Substance: OMACETAXINE MEPESUCCINATE
     Dosage: 2 MG (D1-D7)
     Dates: start: 20241016, end: 20241022
  11. VENETOCLAX [Suspect]
     Active Substance: VENETOCLAX
     Dosage: 100 MG
     Dates: start: 20240717
  12. VENETOCLAX [Suspect]
     Active Substance: VENETOCLAX
     Dosage: 200 MG
     Dates: start: 20240718
  13. VENETOCLAX [Suspect]
     Active Substance: VENETOCLAX
     Dosage: 400 MG (D3-D14)
     Dates: start: 20240719, end: 20240730
  14. GRANULOCYTE COLONY-STIMULATING FACTOR NOS [Concomitant]
     Active Substance: GRANULOCYTE COLONY-STIMULATING FACTOR NOS
     Dosage: 300 UG
     Dates: start: 202406, end: 2024

REACTIONS (10)
  - Myelosuppression [Recovering/Resolving]
  - Haematochezia [Recovering/Resolving]
  - Gastrointestinal haemorrhage [Recovering/Resolving]
  - Pyrexia [Recovered/Resolved]
  - Asthenia [Recovering/Resolving]
  - Diarrhoea [Recovering/Resolving]
  - Cough [Unknown]
  - Productive cough [Unknown]
  - Temperature intolerance [Unknown]
  - Chills [Unknown]

NARRATIVE: CASE EVENT DATE: 20240101
